FAERS Safety Report 15820758 (Version 1)
Quarter: 2019Q1

REPORT INFORMATION
  Report Type: Spontaneous
  Country: US (occurrence: US)
  Receive Date: 20190111
  Receipt Date: 20190111
  Transmission Date: 20190417
  Serious: No
  Sender: FDA-Public Use
  Company Number: None

PATIENT
  Age: 15 Day
  Sex: Female
  Weight: 2.99 kg

DRUGS (1)
  1. ALPROSTADIL, 0.5 MG/ML [Suspect]
     Active Substance: ALPROSTADIL
     Indication: PATENT DUCTUS ARTERIOSUS
     Route: 041

REACTIONS (1)
  - Patent ductus arteriosus [None]

NARRATIVE: CASE EVENT DATE: 20190102
